FAERS Safety Report 24132098 (Version 2)
Quarter: 2024Q3

REPORT INFORMATION
  Report Type: Spontaneous
  Country: US (occurrence: US)
  Receive Date: 20240724
  Receipt Date: 20240731
  Transmission Date: 20241017
  Serious: Yes (Other)
  Sender: BIOGEN
  Company Number: US-BIOGEN-2024BI01270487

PATIENT
  Sex: Female
  Weight: 85.352 kg

DRUGS (1)
  1. TYSABRI [Suspect]
     Active Substance: NATALIZUMAB
     Indication: Multiple sclerosis
     Route: 050
     Dates: start: 20240314

REACTIONS (2)
  - Anaphylactic shock [Not Recovered/Not Resolved]
  - Coeliac disease [Unknown]

NARRATIVE: CASE EVENT DATE: 20240101
